FAERS Safety Report 14749140 (Version 1)
Quarter: 2018Q2

REPORT INFORMATION
  Report Type: Spontaneous
  Country: US (occurrence: US)
  Receive Date: 20180411
  Receipt Date: 20180411
  Transmission Date: 20180711
  Serious: No
  Sender: FDA-Public Use
  Company Number: US-AMGEN-USASP2018016499

PATIENT
  Age: 62 Year
  Sex: Female

DRUGS (1)
  1. PROLIA [Suspect]
     Active Substance: DENOSUMAB
     Indication: OSTEOPOROSIS POSTMENOPAUSAL
     Dosage: UNK
     Route: 065
     Dates: start: 201711

REACTIONS (18)
  - Adverse drug reaction [Unknown]
  - Pain in jaw [Unknown]
  - Middle ear effusion [Unknown]
  - Oral pain [Unknown]
  - Feeling hot [Unknown]
  - Pain [Unknown]
  - Lymphadenopathy [Unknown]
  - Arthralgia [Unknown]
  - Rhinorrhoea [Unknown]
  - Mobility decreased [Unknown]
  - Dyspnoea [Unknown]
  - Spinal disorder [Unknown]
  - Headache [Unknown]
  - Oropharyngeal pain [Unknown]
  - Cough [Unknown]
  - Musculoskeletal stiffness [Unknown]
  - Tongue discomfort [Unknown]
  - Toothache [Unknown]
